FAERS Safety Report 23039857 (Version 1)
Quarter: 2023Q4

REPORT INFORMATION
  Report Type: Report from Study
  Country: CA (occurrence: CA)
  Receive Date: 20231006
  Receipt Date: 20231006
  Transmission Date: 20240110
  Serious: Yes (Other)
  Sender: FDA-Public Use
  Company Number: CA-002147023-NVSC2022CA301989

PATIENT
  Age: 53 Year
  Sex: Female

DRUGS (2)
  1. HYRIMOZ [Suspect]
     Active Substance: ADALIMUMAB-ADAZ
     Dosage: 40 MG
     Route: 058
  2. HYRIMOZ [Suspect]
     Active Substance: ADALIMUMAB-ADAZ
     Indication: Psoriatic arthropathy
     Dosage: 40 MG, (STOPPED ON DEC 2022 OR JAN 2023, LAST HYRIMOZ INJECTION)
     Route: 058
     Dates: start: 20221218

REACTIONS (8)
  - Adverse drug reaction [Recovered/Resolved]
  - Ear swelling [Recovered/Resolved]
  - Furuncle [Recovered/Resolved]
  - Nasal discomfort [Recovered/Resolved]
  - Paradoxical drug reaction [Recovered/Resolved]
  - Sinus disorder [Recovered/Resolved]
  - Psoriatic arthropathy [Recovered/Resolved]
  - Eye swelling [Recovered/Resolved]
